FAERS Safety Report 14180998 (Version 1)
Quarter: 2017Q4

REPORT INFORMATION
  Report Type: Spontaneous
  Country: US (occurrence: US)
  Receive Date: 20171110
  Receipt Date: 20171110
  Transmission Date: 20180321
  Serious: Yes (Life-Threatening, Hospitalization, Disabling, Other)
  Sender: FDA-Public Use
  Company Number: None

PATIENT
  Sex: Female
  Weight: 70.2 kg

DRUGS (9)
  1. ATAROVASTIN [Concomitant]
  2. LYRICA [Concomitant]
     Active Substance: PREGABALIN
  3. FERROUS GLUCONATE [Concomitant]
     Active Substance: FERROUS GLUCONATE
  4. VITAMINS NOS [Concomitant]
     Active Substance: VITAMINS
  5. OMEPRAZOLE. [Concomitant]
     Active Substance: OMEPRAZOLE
  6. SYNTHROID [Concomitant]
     Active Substance: LEVOTHYROXINE SODIUM
  7. PRESERV [Concomitant]
  8. PACERONE [Suspect]
     Active Substance: AMIODARONE HYDROCHLORIDE
     Indication: ATRIAL FIBRILLATION
     Route: 042
  9. ELIQUIS [Concomitant]
     Active Substance: APIXABAN

REACTIONS (17)
  - Fatigue [None]
  - Hypoxia [None]
  - Drug ineffective [None]
  - Tachypnoea [None]
  - Tremor [None]
  - Dizziness [None]
  - Jaundice [None]
  - Anaemia [None]
  - Nausea [None]
  - Lethargy [None]
  - Pulmonary toxicity [None]
  - Off label use [None]
  - Coordination abnormal [None]
  - Hepatotoxicity [None]
  - Decreased appetite [None]
  - Hepatic enzyme increased [None]
  - Dyspnoea [None]

NARRATIVE: CASE EVENT DATE: 20171102
